FAERS Safety Report 10044217 (Version 2)
Quarter: 2014Q2

REPORT INFORMATION
  Report Type: Report from Study
  Country: BR (occurrence: BR)
  Receive Date: 20140328
  Receipt Date: 20140427
  Transmission Date: 20141212
  Serious: Yes (Death, Life-Threatening, Hospitalization, Other)
  Sender: FDA-Public Use
  Company Number: PHHY2014BR037586

PATIENT
  Age: 62 Year
  Sex: Male
  Weight: 75 kg

DRUGS (1)
  1. DIOVAN [Suspect]
     Indication: HYPERTENSION
     Dosage: 1 DF, IN THE MORNING
     Route: 048
     Dates: end: 201308

REACTIONS (3)
  - Renal cancer [Fatal]
  - Renal cancer metastatic [Fatal]
  - Coma [Fatal]
